FAERS Safety Report 6100214-9 (Version None)
Quarter: 2009Q1

REPORT INFORMATION
  Report Type: 
  Country: None (occurrence: None)
  Receive Date: 20090226
  Receipt Date: 20090212
  Transmission Date: 20090719
  Serious: Yes (Hospitalization)
  Sender: FDA-Public Use
  Company Number: MIN-00472

PATIENT
  Age: 37 Year
  Sex: Female
  Weight: 53 kg

DRUGS (2)
  1. MINOCYCLINE HYDROCHLORIDE [Suspect]
     Indication: NASOPHARYNGITIS
     Dosage: ORAL
     Route: 048
     Dates: start: 20050901, end: 20050101
  2. MINOCYCLINE HCL [Suspect]
     Indication: OROPHARYNGEAL PAIN
     Dosage: 100 MG, ONCE, ORAL
     Route: 048
     Dates: start: 20060601, end: 20060101

REACTIONS (7)
  - ACUTE RESPIRATORY DISTRESS SYNDROME [None]
  - EOSINOPHILIC PNEUMONIA ACUTE [None]
  - HEART RATE INCREASED [None]
  - IRON DEFICIENCY ANAEMIA [None]
  - NEUTROPHILIA [None]
  - PLEURAL EFFUSION [None]
  - PNEUMONIA BACTERIAL [None]
